FAERS Safety Report 25761450 (Version 1)
Quarter: 2025Q3

REPORT INFORMATION
  Report Type: Report from Study
  Country: CA (occurrence: CA)
  Receive Date: 20250904
  Receipt Date: 20250904
  Transmission Date: 20251020
  Serious: Yes (Other)
  Sender: PFIZER
  Company Number: CA-PFIZER INC-202500173717

PATIENT
  Sex: Male

DRUGS (3)
  1. ADALIMUMAB [Suspect]
     Active Substance: ADALIMUMAB
     Indication: Hidradenitis
     Dosage: 1 DF, WEEKLY
  2. ADALIMUMAB [Suspect]
     Active Substance: ADALIMUMAB
     Dosage: 40 MG, WEEKLY
     Route: 058
  3. ADALIMUMAB [Suspect]
     Active Substance: ADALIMUMAB
     Dosage: 80 MG, WEEKLY
     Route: 058

REACTIONS (7)
  - Drug ineffective [Unknown]
  - Injection site haemorrhage [Unknown]
  - Injection site pain [Unknown]
  - Muscle haemorrhage [Unknown]
  - Muscle spasms [Unknown]
  - Rash [Unknown]
  - Off label use [Unknown]
